FAERS Safety Report 20910351 (Version 1)
Quarter: 2022Q2

REPORT INFORMATION
  Report Type: Spontaneous
  Country: US (occurrence: None)
  Receive Date: 20220602
  Receipt Date: 20220602
  Transmission Date: 20220721
  Serious: Yes (Hospitalization)
  Sender: FDA-Public Use
  Company Number: None

PATIENT
  Age: 68 Year
  Sex: Female
  Weight: 70.99 kg

DRUGS (9)
  1. ACYCLOVIR [Suspect]
     Active Substance: ACYCLOVIR
     Indication: Plasma cell myeloma
     Dosage: FREQUENCY : TWICE A DAY;?
     Route: 048
     Dates: start: 20220504
  2. HUMULIN R [Concomitant]
     Active Substance: INSULIN HUMAN
  3. ASPIRIN [Concomitant]
     Active Substance: ASPIRIN
  4. PLAVIX [Concomitant]
     Active Substance: CLOPIDOGREL BISULFATE
  5. METOPROLOL [Concomitant]
     Active Substance: METOPROLOL
  6. IRON [Concomitant]
     Active Substance: IRON
  7. LOSARTAN [Concomitant]
     Active Substance: LOSARTAN
  8. Pantoptazole [Concomitant]
  9. ATORVASTATIN [Concomitant]
     Active Substance: ATORVASTATIN

REACTIONS (6)
  - Anaemia [None]
  - Back pain [None]
  - Therapy interrupted [None]
  - Diarrhoea [None]
  - Tremor [None]
  - Asthenia [None]
